FAERS Safety Report 7764137-1 (Version None)
Quarter: 2011Q3

REPORT INFORMATION
  Report Type: 
  Country: None (occurrence: None)
  Receive Date: 20110916
  Receipt Date: 20110905
  Transmission Date: 20111222
  Serious: Yes (Other)
  Sender: FDA-Public Use
  Company Number: DSJ-2011-12336

PATIENT
  Age: 46 Year
  Sex: Male

DRUGS (1)
  1. BENICAR [Suspect]
     Indication: HYPERTENSION
     Dosage: 20 MG 920 MG, 1 IN 1 D), PER ORAL
     Route: 048
     Dates: start: 20101101, end: 20110601

REACTIONS (2)
  - DRUG INEFFECTIVE [None]
  - LITHOTRIPSY [None]
